FAERS Safety Report 6609587-1 (Version None)
Quarter: 2010Q1

REPORT INFORMATION
  Report Type: 
  Country: None (occurrence: None)
  Receive Date: 20100224
  Receipt Date: 20100212
  Transmission Date: 20100710
  Serious: Yes (Disabling, Other)
  Sender: FDA-Public Use
  Company Number: 2008AL012294

PATIENT
  Age: 85 Year
  Sex: Male

DRUGS (11)
  1. VERAPAMIL HYDROCHLORIDE [Suspect]
     Indication: ATRIAL FIBRILLATION
     Dosage: 40 MG; TID; PO
     Route: 048
     Dates: start: 20080801
  2. SIMVASTATIN [Concomitant]
  3. FUROSEMIDE [Concomitant]
  4. ACETYLSALICYLIC ACID SRT [Concomitant]
  5. LISINOPRIL [Concomitant]
  6. ACETAMINOPHEN AND CODEINE PHOSPHATE [Concomitant]
  7. BRIMONIDINE [Concomitant]
  8. SALBUTAMOL [Concomitant]
  9. SALMETEROL [Concomitant]
  10. QVAR 40 [Concomitant]
  11. ACETAMINOPHEN AND CODEINE PHOSPHATE [Concomitant]

REACTIONS (2)
  - HYPOKINESIA [None]
  - MYOSITIS [None]
